FAERS Safety Report 7311213-3 (Version None)
Quarter: 2011Q1

REPORT INFORMATION
  Report Type: 
  Country: None (occurrence: None)
  Receive Date: 20110224
  Receipt Date: 20110209
  Transmission Date: 20110831
  Serious: Yes (Life-Threatening, Hospitalization, Other)
  Sender: FDA-Public Use
  Company Number: US-BAYER-201034349NA

PATIENT
  Sex: Female

DRUGS (1)
  1. YAZ [Suspect]
     Indication: PRODUCT USED FOR UNKNOWN INDICATION
     Dosage: UNK UNK, QD
     Route: 048
     Dates: start: 20090301, end: 20091201

REACTIONS (9)
  - PULMONARY EMBOLISM [None]
  - TACHYCARDIA [None]
  - GALLBLADDER DISORDER [None]
  - PAIN [None]
  - CHEST DISCOMFORT [None]
  - DEPRESSION [None]
  - ANXIETY [None]
  - PLEURITIC PAIN [None]
  - ABDOMINAL PAIN UPPER [None]
